FAERS Safety Report 8867591 (Version 1)
Quarter: 2012Q4

REPORT INFORMATION
  Report Type: 
  Country: US (occurrence: US)
  Receive Date: 20121025
  Receipt Date: 20121025
  Transmission Date: 20130627
  Serious: No
  Sender: FDA-Public Use
  Company Number: US-AMGEN-USASP2012017553

PATIENT
  Age: 54 Year
  Sex: Female
  Weight: 99.77 kg

DRUGS (10)
  1. ENBREL [Suspect]
     Indication: PRODUCT USED FOR UNKNOWN INDICATION
     Dosage: 50 mg, qwk
  2. METHOTREXATE [Concomitant]
  3. AMLODIPINE BENAZEPRIL [Concomitant]
  4. NEXIUM                             /01479302/ [Concomitant]
     Dosage: 40 mg, UNK
  5. SINGULAIR [Concomitant]
     Dosage: 10 mg, UNK
  6. VITAMIN C                          /00008001/ [Concomitant]
     Dosage: 1000 mg, UNK
  7. VITAMIN D /00107901/ [Concomitant]
  8. CALCIUM +D                         /00188401/ [Concomitant]
  9. LIPITOR [Concomitant]
     Dosage: 10 mg, UNK
  10. FOLIC ACID [Concomitant]

REACTIONS (3)
  - Injection site bruising [Unknown]
  - Injection site pain [Unknown]
  - Sinusitis [Unknown]
